FAERS Safety Report 7367579-1 (Version None)
Quarter: 2011Q1

REPORT INFORMATION
  Report Type: 
  Country: None (occurrence: None)
  Receive Date: 20110322
  Receipt Date: 20110311
  Transmission Date: 20110831
  Serious: Yes (Hospitalization)
  Sender: FDA-Public Use
  Company Number: FR-BAXTER-2011BH006433

PATIENT
  Age: 81 Year
  Sex: Female

DRUGS (4)
  1. NUTRINEAL [Suspect]
     Indication: PERITONEAL DIALYSIS
     Route: 033
  2. EXTRANEAL [Suspect]
     Indication: PERITONEAL DIALYSIS
     Route: 033
  3. ISO [Concomitant]
     Indication: PERITONEAL DIALYSIS
     Route: 033
  4. HYPER [Concomitant]
     Route: 033

REACTIONS (5)
  - DIARRHOEA [None]
  - FATIGUE [None]
  - PERITONITIS [None]
  - PYREXIA [None]
  - GENERAL PHYSICAL HEALTH DETERIORATION [None]
